FAERS Safety Report 19047875 (Version 5)
Quarter: 2022Q2

REPORT INFORMATION
  Report Type: Report from Study
  Country: US (occurrence: US)
  Receive Date: 20210323
  Receipt Date: 20220620
  Transmission Date: 20220721
  Serious: No
  Sender: FDA-Public Use
  Company Number: NVSC2021US062744

PATIENT
  Sex: Female

DRUGS (2)
  1. PROMACTA [Suspect]
     Active Substance: ELTROMBOPAG OLAMINE
     Indication: Immune thrombocytopenia
     Dosage: UNK
     Route: 065
  2. PROMACTA [Suspect]
     Active Substance: ELTROMBOPAG OLAMINE
     Dosage: 50 MG, QOD (EVERY OTHER DAY)
     Route: 048

REACTIONS (5)
  - Insomnia [Unknown]
  - Fatigue [Unknown]
  - Incorrect dose administered [Unknown]
  - Platelet count decreased [Unknown]
  - Platelet count increased [Recovering/Resolving]
